FAERS Safety Report 9041127 (Version 1)
Quarter: 2013Q1

REPORT INFORMATION
  Report Type: Spontaneous
  Country: US (occurrence: None)
  Receive Date: 20130114
  Receipt Date: 20130114
  Transmission Date: 20140127
  Serious: Yes (Life-Threatening, Hospitalization)
  Sender: FDA-Public Use
  Company Number: 2013/005

PATIENT
  Age: 18 Year
  Sex: Male

DRUGS (2)
  1. LEVETIRACETAM [Suspect]
     Indication: CONVULSION
  2. PHENYTOIN EXTENDED RELEASE (UNKNOWN) [Suspect]
     Indication: CONVULSION
     Dosage: OD

REACTIONS (6)
  - Drug reaction with eosinophilia and systemic symptoms [None]
  - Periorbital oedema [None]
  - Transaminases increased [None]
  - Prothrombin time prolonged [None]
  - International normalised ratio increased [None]
  - General physical health deterioration [None]
